FAERS Safety Report 4944240-1 (Version None)
Quarter: 2006Q1

REPORT INFORMATION
  Report Type: 
  Country: None (occurrence: None)
  Receive Date: 20060309
  Receipt Date: 20060228
  Transmission Date: 20060701
  Serious: Yes (Hospitalization)
  Sender: FDA-Public Use
  Company Number: 2005BI020072

PATIENT
  Age: 60 Year
  Sex: Female

DRUGS (6)
  1. AVONEX [Suspect]
     Indication: MULTIPLE SCLEROSIS
     Dosage: 30 UG; QW; IM
     Route: 030
     Dates: start: 20041001
  2. CELEBREX [Concomitant]
  3. SENESTIN [Concomitant]
  4. VITAMINS (NOS) [Concomitant]
  5. TYLENOL [Concomitant]
  6. VICODEN [Concomitant]

REACTIONS (1)
  - MENINGIOMA [None]
